FAERS Safety Report 15271915 (Version 1)
Quarter: 2018Q3

REPORT INFORMATION
  Report Type: Report from Study
  Country: PA (occurrence: PA)
  Receive Date: 20180813
  Receipt Date: 20180813
  Transmission Date: 20181010
  Serious: Yes (Death, Disabling, Other)
  Sender: FDA-Public Use
  Company Number: PHHY2018PA069208

PATIENT
  Age: 92 Year
  Sex: Male

DRUGS (5)
  1. TRILEPTAL [Suspect]
     Active Substance: OXCARBAZEPINE
     Indication: TRIGEMINAL NEURALGIA
     Dosage: 1 DF, QD (IN THE LAST 2 YEARS)
     Route: 048
     Dates: start: 2011
  2. FINASTERIDE. [Concomitant]
     Active Substance: FINASTERIDE
     Indication: PROSTATIC DISORDER
     Route: 065
  3. TRILEPTAL [Suspect]
     Active Substance: OXCARBAZEPINE
     Dosage: 1 DF, (EVERY 8 HOURS)
     Route: 048
  4. ASPIRIN. [Concomitant]
     Active Substance: ASPIRIN
     Indication: CARDIOVASCULAR DISORDER
     Route: 065
  5. ALPRAZOLAM. [Concomitant]
     Active Substance: ALPRAZOLAM
     Indication: INSOMNIA
     Route: 065

REACTIONS (12)
  - Movement disorder [Unknown]
  - Salivary hypersecretion [Unknown]
  - Dysphagia [Unknown]
  - Dementia [Unknown]
  - Pruritus [Unknown]
  - Ischaemic cerebral infarction [Fatal]
  - Balance disorder [Unknown]
  - Pemphigoid [Unknown]
  - Skin injury [Unknown]
  - Pain [Unknown]
  - Product use in unapproved indication [Unknown]
  - Eczema [Unknown]
